FAERS Safety Report 9157055 (Version 1)
Quarter: 2013Q1

REPORT INFORMATION
  Report Type: Spontaneous
  Country: US (occurrence: US)
  Receive Date: 20130312
  Receipt Date: 20130312
  Transmission Date: 20140127
  Serious: No
  Sender: FDA-Public Use
  Company Number: US-PFIZER INC-2013079585

PATIENT
  Age: 59 Year
  Sex: 0

DRUGS (6)
  1. KETOROLAC TROMETHAMINE [Suspect]
     Dosage: UNK
  2. GENTAMICIN SULFATE [Suspect]
     Dosage: UNK
  3. ERYTHROMYCIN [Suspect]
     Dosage: UNK
  4. REGLAN [Suspect]
     Dosage: UNK
  5. BACTRIM [Suspect]
     Dosage: UNK
  6. AUGMENTIN [Suspect]
     Dosage: UNK

REACTIONS (1)
  - Drug hypersensitivity [Unknown]
